FAERS Safety Report 8071664-9 (Version None)
Quarter: 2012Q1

REPORT INFORMATION
  Report Type: 
  Country: None (occurrence: None)
  Receive Date: 20120125
  Receipt Date: 20120120
  Transmission Date: 20120608
  Serious: Yes (Disabling, Other)
  Sender: FDA-Public Use
  Company Number: US-PFIZER INC-2011214283

PATIENT
  Sex: Female

DRUGS (1)
  1. GEODON [Suspect]
     Indication: TOURETTE'S DISORDER
     Dosage: 80 MG, 2X/DAY
     Route: 048

REACTIONS (1)
  - BIPOLAR DISORDER [None]
